FAERS Safety Report 11185483 (Version 2)
Quarter: 2015Q2

REPORT INFORMATION
  Report Type: Spontaneous
  Country: PE (occurrence: PE)
  Receive Date: 20150612
  Receipt Date: 20150623
  Transmission Date: 20150821
  Serious: Yes (Other)
  Sender: FDA-Public Use
  Company Number: PE-PFIZER INC-2015192145

PATIENT
  Age: 83 Year
  Sex: Female

DRUGS (1)
  1. ACCURETIC [Suspect]
     Active Substance: HYDROCHLOROTHIAZIDE\QUINAPRIL HYDROCHLORIDE
     Indication: HYPERTENSION
     Dosage: 1 DF ^20 MG^, DAILY

REACTIONS (1)
  - No adverse event [Not Recovered/Not Resolved]
